FAERS Safety Report 6129621-5 (Version None)
Quarter: 2009Q1

REPORT INFORMATION
  Report Type: 
  Country: None (occurrence: None)
  Receive Date: 20090320
  Receipt Date: 20090309
  Transmission Date: 20090719
  Serious: Yes (Other)
  Sender: FDA-Public Use
  Company Number: 09-021

PATIENT
  Age: 60 Year
  Sex: Female

DRUGS (11)
  1. CEFTRIAXONE [Suspect]
     Indication: URINARY TRACT INFECTION
     Dosage: 2G, DAILY AND IV
     Route: 042
  2. BIPHASIC ISOPHANE INSULIN [Concomitant]
  3. AMLODIPINE [Concomitant]
  4. FUROSEMIDE [Concomitant]
  5. RAMIPRIL [Concomitant]
  6. PRAVASTATIN [Concomitant]
  7. ACETYLSALICYLIC ACID [Concomitant]
  8. NITROGLYCERIN [Concomitant]
  9. AMITRIPTYLINE [Concomitant]
  10. ESOMEPRAZOLE [Concomitant]
  11. CARBAMAZEPINE [Concomitant]

REACTIONS (2)
  - HYPERGLYCAEMIA [None]
  - TOXIC ENCEPHALOPATHY [None]
